FAERS Safety Report 25298610 (Version 5)
Quarter: 2025Q4

REPORT INFORMATION
  Report Type: Spontaneous
  Country: GB (occurrence: GB)
  Receive Date: 20250512
  Receipt Date: 20251209
  Transmission Date: 20260117
  Serious: Yes (Disabling, Other)
  Sender: ADVANZ PHARMA
  Company Number: GB-Accord-481330

PATIENT

DRUGS (27)
  1. PREDNISOLONE [Suspect]
     Active Substance: PREDNISOLONE
     Indication: Giant cell arteritis
     Dosage: 100 MG, QD
     Route: 065
  2. PREDNISOLONE [Suspect]
     Active Substance: PREDNISOLONE
     Dosage: 60 MG, QD
     Route: 065
     Dates: start: 202405, end: 2025
  3. PREDNISOLONE [Suspect]
     Active Substance: PREDNISOLONE
     Dosage: 40 MG, QD
     Route: 065
     Dates: start: 2025, end: 2025
  4. PREDNISOLONE [Suspect]
     Active Substance: PREDNISOLONE
     Dosage: 60 MG, QD (STRENGTH: 10 MG, ONCE DAILY)
     Route: 048
     Dates: start: 20250331, end: 2025
  5. PREDNISOLONE [Suspect]
     Active Substance: PREDNISOLONE
     Dosage: 12.5 MG, QD
     Route: 065
     Dates: start: 2025
  6. PREDNISOLONE [Suspect]
     Active Substance: PREDNISOLONE
     Dosage: 2.5 MG, QD (2.5MG, AS PER TAPERINGREGIMEN, 56 TABLET )
     Route: 065
  7. PREDNISOLONE [Suspect]
     Active Substance: PREDNISOLONE
     Dosage: 5 MG, QD (5MG, ONCE A DAY, 28 TABLET)
     Route: 065
     Dates: start: 20250416, end: 2025
  8. CALCIUM [Concomitant]
     Active Substance: CALCIUM
     Indication: Product used for unknown indication
     Dosage: UNK
     Route: 065
  9. VITAMIN D NOS [Concomitant]
     Active Substance: CHOLECALCIFEROL\ERGOCALCIFEROL
     Indication: Product used for unknown indication
     Dosage: UNK
     Route: 065
  10. FLUOXETINE [Concomitant]
     Active Substance: FLUOXETINE HYDROCHLORIDE
     Indication: Depression
     Dosage: 20 MG, QD (STRENGTH: 20 MG, DAILY),GREEN/CREAM CAPSULES (TWO CAPSULES IN THE MORNING),
     Route: 048
     Dates: start: 20190115
  11. FLUOXETINE [Concomitant]
     Active Substance: FLUOXETINE HYDROCHLORIDE
     Dosage: 20 MG, QD (STRENGTH: 20 MG, TAKE TWO CAPSULES ADAY, 14 CAPSULE)
     Route: 048
     Dates: start: 20250918
  12. OLANZAPINE [Concomitant]
     Active Substance: OLANZAPINE
     Indication: Schizophrenia
     Dosage: 10 MG, QD (STRENGTH: 10 MG, ONCE DALIY),WHITE ROUND TABLET (ONE TABLET AT NIGHT)
     Route: 048
     Dates: start: 20190530
  13. OLANZAPINE [Concomitant]
     Active Substance: OLANZAPINE
     Dosage: 10 MG, QD (10 MG, ONCE TO BE TAKEN EACH DAY, 7 TABLET)
     Route: 048
     Dates: start: 20250918
  14. OMEPRAZOLE [Concomitant]
     Active Substance: OMEPRAZOLE
     Indication: Product used for unknown indication
     Dosage: 20 MG, QD (ONE TO BE TAKEN, 14 CAPSULE),
     Route: 065
  15. THIAMINE [Concomitant]
     Active Substance: THIAMINE
     Indication: Product used for unknown indication
     Dosage: 100 MG, QD (STRENGTH: 100 MG OD),WHITE ROUND TABLETS (ONE IN THE MORNING, ONE IN THE EVENING, AND ON
     Route: 048
     Dates: start: 20190221
  16. THIAMINE [Concomitant]
     Active Substance: THIAMINE
     Dosage: 100 MG, QD (ONE TO BE TAKEN THREE TIMES A DAY, 21 TABLET)
     Route: 048
     Dates: start: 20250918
  17. CARBAMAZEPINE [Concomitant]
     Active Substance: CARBAMAZEPINE
     Indication: Product used for unknown indication
     Dosage: 100 MG, BID (100 MG, ONE TABLET TWICE A DAY, 14 TABLET)
     Route: 065
     Dates: start: 20250918
  18. ASPIRIN [Concomitant]
     Active Substance: ASPIRIN
     Indication: Product used for unknown indication
     Dosage: 75 MG, QD (ONE TO BE TAKEN EACH DAY, 7 TABLET)
     Route: 065
     Dates: start: 20250918
  19. METFORMIN [Concomitant]
     Active Substance: METFORMIN HYDROCHLORIDE
     Indication: Product used for unknown indication
     Dosage: 500 MG, BID (ONE TO BE TAKEN TWICE A DAY, 14 TABLET)
     Route: 065
     Dates: start: 20250918
  20. OLMESARTAN [Concomitant]
     Active Substance: OLMESARTAN
     Indication: Product used for unknown indication
     Dosage: 10 MG, QD (ONE TO BE TAKEN EACH DAY, 7 TABLET)
     Route: 065
     Dates: start: 20250918
  21. AMITRIPTYLINE [Concomitant]
     Active Substance: AMITRIPTYLINE
     Indication: Product used for unknown indication
     Dosage: 50 MG, BID (ONE TO BE TAKEN TWICE A DAY, 14 TABLET)
     Route: 065
     Dates: start: 20250918
  22. AMLODIPINE [Concomitant]
     Active Substance: AMLODIPINE BESYLATE
     Indication: Product used for unknown indication
     Dosage: 5 MG, QD (ONE TO BE TAKEN EACH DAY, 7 TABLET)
     Route: 065
  23. ATORVASTATIN [Concomitant]
     Active Substance: ATORVASTATIN
     Indication: Hyperlipidaemia
     Dosage: 40 MG (STRENGTH: 40MG) (ONE TABLET AT NIGHT),
     Route: 048
     Dates: start: 20190221
  24. ATORVASTATIN [Concomitant]
     Active Substance: ATORVASTATIN
     Dosage: 40 MG, QD (ONE TO BE TAKEN EACH DAY, 7 TABLET)
     Route: 048
     Dates: start: 20250918
  25. DAPAGLIFLOZIN [Concomitant]
     Active Substance: DAPAGLIFLOZIN
     Indication: Product used for unknown indication
     Dosage: 10 MG, QD (ONE TO BE TAKEN DAILY, 7 TABLET)
     Route: 065
     Dates: start: 20250918
  26. COCODAMOL [Concomitant]
     Active Substance: ACETAMINOPHEN\CODEINE PHOSPHATE
     Indication: Product used for unknown indication
     Dosage: UNK, PRN (30MG/500MG TABLETS, TWO TO BE TAKEN FOUR TIME A DAY WHEN REQUIRED, 100 TABLET)
     Route: 065
  27. COMIRNATY [Concomitant]
     Indication: Product used for unknown indication
     Dosage: 0.3 ML (30MICROGRAMS/0.3ML, MULTIDOSE VIALS, 0.3 ML)
     Route: 030
     Dates: start: 20241009

REACTIONS (18)
  - Malignant melanoma [Recovered/Resolved]
  - Type 2 diabetes mellitus [Not Recovered/Not Resolved]
  - Osteomyelitis [Unknown]
  - Dyspnoea exertional [Unknown]
  - Obstructive sleep apnoea syndrome [Unknown]
  - Circulatory collapse [Unknown]
  - Withdrawal syndrome [Unknown]
  - Schizophrenia [Unknown]
  - Cataract [Not Recovered/Not Resolved]
  - Kyphosis [Unknown]
  - Full blood count decreased [Unknown]
  - Gait disturbance [Unknown]
  - Joint swelling [Unknown]
  - Peripheral swelling [Recovering/Resolving]
  - Hypertension [Unknown]
  - Cushingoid [Unknown]
  - Abnormal weight gain [Unknown]
  - Drug ineffective [Unknown]

NARRATIVE: CASE EVENT DATE: 20240711
